FAERS Safety Report 21047557 (Version 1)
Quarter: 2022Q3

REPORT INFORMATION
  Report Type: Spontaneous
  Country: GB (occurrence: GB)
  Receive Date: 20220706
  Receipt Date: 20220706
  Transmission Date: 20221027
  Serious: Yes (Other)
  Sender: FDA-Public Use
  Company Number: GB-MHRA-MED-202206261413153940-YFNCT

PATIENT
  Age: 33 Year
  Sex: Male
  Weight: 82 kg

DRUGS (2)
  1. GABAPENTIN [Suspect]
     Active Substance: GABAPENTIN
     Indication: Product used for unknown indication
     Dosage: UNK UNK, HS (3X 300MG)
     Route: 065
  2. GABAPENTIN [Suspect]
     Active Substance: GABAPENTIN
     Dosage: UNK UNK, HS (1X 300MG)
     Route: 065

REACTIONS (13)
  - Peripheral swelling [Recovered/Resolved]
  - Anger [Recovered/Resolved]
  - Vision blurred [Recovering/Resolving]
  - Aphasia [Recovering/Resolving]
  - Red ear syndrome [Recovering/Resolving]
  - Abnormal dreams [Recovering/Resolving]
  - Cognitive disorder [Recovering/Resolving]
  - Flatulence [Recovering/Resolving]
  - Increased appetite [Recovering/Resolving]
  - Lymphadenopathy [Recovered/Resolved]
  - Amnesia [Recovering/Resolving]
  - Hypersensitivity [Unknown]
  - Medication error [Unknown]

NARRATIVE: CASE EVENT DATE: 20170401
